FAERS Safety Report 4981183-1 (Version None)
Quarter: 2006Q2

REPORT INFORMATION
  Report Type: 
  Country: None (occurrence: None)
  Receive Date: 20060418
  Receipt Date: 20060404
  Transmission Date: 20061013
  Serious: Yes (Death, Hospitalization)
  Sender: FDA-Public Use
  Company Number: 2006-BP-03971RO

PATIENT
  Age: 28 Year
  Sex: Male

DRUGS (1)
  1. PREDNISONE TAB [Suspect]
     Indication: SUBACUTE ENDOCARDITIS
     Dosage: 30 MG Q12H

REACTIONS (21)
  - ACUTE RESPIRATORY DISTRESS SYNDROME [None]
  - ALPHA HAEMOLYTIC STREPTOCOCCAL INFECTION [None]
  - AORTIC VALVE DISEASE [None]
  - BLOOD LACTATE DEHYDROGENASE INCREASED [None]
  - BLOOD PRESSURE DECREASED [None]
  - CARDIAC ARREST [None]
  - CARDIAC MURMUR [None]
  - CARDIAC VALVE ABSCESS [None]
  - CARDIAC VALVE VEGETATION [None]
  - COUGH [None]
  - CYANOSIS [None]
  - FOETAL HEART RATE INCREASED [None]
  - GENERAL PHYSICAL HEALTH DETERIORATION [None]
  - HAEMATOCRIT DECREASED [None]
  - HAEMOPTYSIS [None]
  - MITRAL VALVE DISEASE [None]
  - PLEURITIC PAIN [None]
  - RESPIRATORY RATE INCREASED [None]
  - SPLINTER HAEMORRHAGES [None]
  - TRICUSPID VALVE DISEASE [None]
  - WHITE BLOOD CELL COUNT INCREASED [None]
